FAERS Safety Report 7412808-9 (Version None)
Quarter: 2011Q2

REPORT INFORMATION
  Report Type: 
  Country: None (occurrence: None)
  Receive Date: 20110413
  Receipt Date: 20110124
  Transmission Date: 20111010
  Serious: Yes (Hospitalization)
  Sender: FDA-Public Use
  Company Number: B0700658A

PATIENT
  Age: 68 Year
  Sex: Male

DRUGS (3)
  1. LEVETIRACETAM [Suspect]
     Dosage: 200MG PER DAY
     Route: 065
  2. LAMOTRIGINE [Suspect]
     Dosage: 400MG PER DAY
     Route: 065
  3. PHENOBARBITAL SRT [Suspect]
     Dosage: 100MG PER DAY
     Route: 065

REACTIONS (3)
  - COMA [None]
  - DISORIENTATION [None]
  - CONVULSION [None]
